FAERS Safety Report 4785295-7 (Version None)
Quarter: 2005Q3

REPORT INFORMATION
  Report Type: 
  Country: None (occurrence: None)
  Receive Date: 20050929
  Receipt Date: 20050914
  Transmission Date: 20060218
  Serious: Yes (Death)
  Sender: FDA-Public Use
  Company Number: 05-07-1245

PATIENT
  Sex: Male

DRUGS (12)
  1. CIPROFLOXACIN TABLETS, (100 MG), 250 MG, 500 MG [Suspect]
     Dosage: 250MG BID
  2. SPIRIVA (TIOTROPIUM BROMIDE) (UNKNOWN) [Suspect]
     Dosage: 18MCG QD, INHALATION
     Route: 055
  3. COMBIVENT [Suspect]
     Dosage: 2.5ML QDS, INHALATION
     Route: 055
  4. SERETIDE (FLUTICASONE PROPIONATE W/SALMETEROL) (UNKNOWN) [Suspect]
     Dosage: 1 DOSE BID, INHALATION
     Route: 055
  5. SODIUM CHLORIDE (SODIUM CHLORIDE) (UNKNOWN) [Suspect]
     Dosage: 0.9% SOLUTION
  6. PREDNISOLONE [Suspect]
     Dosage: 5MG 6QD
  7. AMLODIPINE [Suspect]
     Dosage: 5MG QD/2 TAB
  8. TRIMETHOPRIM [Suspect]
     Dosage: 200MG BID
  9. FUROSEMIDE [Suspect]
     Dosage: 40MG OM
  10. LIDOCAINE HYDROCHLORIDE [Suspect]
     Dosage: 11 ML
  11. CLOTRIMAZOLE (CLOTRIMAZOLE) (UNKNOWN) [Suspect]
     Dosage: 1% 2-3 TIMES
  12. DERMALO HYDROBASE (UNKNOWN) [Suspect]
     Dosage: AS NEEDED, TOPICAL
     Route: 061

REACTIONS (4)
  - CARDIAC FAILURE CONGESTIVE [None]
  - CHRONIC OBSTRUCTIVE PULMONARY DISEASE [None]
  - CYSTITIS [None]
  - DIZZINESS [None]
